FAERS Safety Report 5594639-8 (Version None)
Quarter: 2008Q1

REPORT INFORMATION
  Report Type: 
  Country: None (occurrence: None)
  Receive Date: 20080117
  Receipt Date: 20080109
  Transmission Date: 20080703
  Serious: Yes (Other)
  Sender: FDA-Public Use
  Company Number: JP-AVENTIS-200810078JP

PATIENT
  Age: 97 Year
  Sex: Female

DRUGS (2)
  1. FUROSEMIDE [Suspect]
     Route: 042
  2. UNKNOWN DRUG [Suspect]

REACTIONS (1)
  - STEVENS-JOHNSON SYNDROME [None]
